FAERS Safety Report 4324387-3 (Version None)
Quarter: 2004Q1

REPORT INFORMATION
  Report Type: 
  Country: None (occurrence: None)
  Receive Date: 20040326
  Receipt Date: 20040206
  Transmission Date: 20041129
  Serious: No
  Sender: FDA-Public Use
  Company Number: US-GLAXOSMITHKLINE-A0497100A

PATIENT
  Age: 44 Year
  Sex: Female

DRUGS (3)
  1. ADVAIR DISKUS 100/50 [Suspect]
     Dosage: 1PUFF TWICE PER DAY
     Route: 055
     Dates: start: 20030701, end: 20031201
  2. NASACORT [Concomitant]
  3. ALBUTEROL [Concomitant]

REACTIONS (1)
  - VAGINAL MYCOSIS [None]
